FAERS Safety Report 18206687 (Version 1)
Quarter: 2020Q3

REPORT INFORMATION
  Report Type: Spontaneous
  Country: US (occurrence: US)
  Receive Date: 20200828
  Receipt Date: 20200828
  Transmission Date: 20201103
  Serious: No
  Sender: FDA-Public Use
  Company Number: US-PFIZER INC-2019079906

PATIENT
  Age: 67 Year

DRUGS (6)
  1. PREMARIN [Suspect]
     Active Substance: ESTROGENS, CONJUGATED
     Indication: MENOPAUSAL SYMPTOMS
     Dosage: UNK UNK, 2X/WEEK
     Route: 067
     Dates: start: 20190418
  2. PREMARIN [Suspect]
     Active Substance: ESTROGENS, CONJUGATED
     Indication: VULVOVAGINAL DRYNESS
     Dosage: UNK UNK, 2X/WEEK
     Route: 067
     Dates: start: 20190214
  3. PREMARIN [Suspect]
     Active Substance: ESTROGENS, CONJUGATED
     Dosage: UNK UNK, 3X/WEEK
     Route: 067
  4. PREMARIN [Suspect]
     Active Substance: ESTROGENS, CONJUGATED
     Dosage: UNK UNK, 2X/WEEK
     Route: 067
     Dates: start: 20191017
  5. PREMARIN [Suspect]
     Active Substance: ESTROGENS, CONJUGATED
     Dosage: 0.625 MG, 2X/WEEK
     Route: 067
     Dates: start: 20200521
  6. PREMARIN [Suspect]
     Active Substance: ESTROGENS, CONJUGATED
     Dosage: UNK UNK, 2X/WEEK
     Route: 067
     Dates: start: 20200518

REACTIONS (2)
  - Dyslexia [Unknown]
  - Off label use [Unknown]

NARRATIVE: CASE EVENT DATE: 20200521
